FAERS Safety Report 4417967-8 (Version None)
Quarter: 2004Q2

REPORT INFORMATION
  Report Type: 
  Country: None (occurrence: None)
  Receive Date: 20040622
  Receipt Date: 20031112
  Transmission Date: 20050107
  Serious: Yes (Hospitalization)
  Sender: FDA-Public Use
  Company Number: 351779

PATIENT
  Sex: 0

DRUGS (1)
  1. XELODA [Suspect]
     Dosage: ORAL
     Route: 048

REACTIONS (1)
  - DIARRHOEA [None]
